FAERS Safety Report 20543716 (Version 3)
Quarter: 2025Q2

REPORT INFORMATION
  Report Type: Spontaneous
  Country: ES (occurrence: SE)
  Receive Date: 20220303
  Receipt Date: 20250609
  Transmission Date: 20250716
  Serious: Yes (Hospitalization, Other)
  Sender: AUROBINDO
  Company Number: SE-ARISTO PHARMA-LAMO202202031

PATIENT
  Age: 38 Year
  Sex: Male

DRUGS (6)
  1. LAMOTRIGINE [Suspect]
     Active Substance: LAMOTRIGINE
     Indication: Depression
     Dosage: 200 MILLIGRAM, ONCE A DAY (IN 6 WEEKS)
     Route: 065
  2. ASENAPINE [Concomitant]
     Active Substance: ASENAPINE
     Indication: Depression
     Dosage: 5 MILLIGRAM, ONCE A DAY
     Route: 065
  3. EMTRICITABINE\RILPIVIRINE HYDROCHLORIDE\TENOFOVIR ALAFENAMIDE FUMARATE [Concomitant]
     Active Substance: EMTRICITABINE\RILPIVIRINE HYDROCHLORIDE\TENOFOVIR ALAFENAMIDE FUMARATE
     Indication: HIV infection
     Route: 065
  4. PALIPERIDONE [Concomitant]
     Active Substance: PALIPERIDONE
     Indication: Product used for unknown indication
     Dosage: 3 MILLIGRAM, ONCE A DAY
     Route: 065
  5. LITHIUM [Concomitant]
     Active Substance: LITHIUM
     Indication: Product used for unknown indication
     Dosage: 1000 MILLIGRAM, ONCE A DAY
     Route: 065
  6. LURASIDONE [Concomitant]
     Active Substance: LURASIDONE
     Indication: Product used for unknown indication
     Dosage: 37 MILLIGRAM, ONCE A DAY
     Route: 065

REACTIONS (2)
  - Mania [Recovered/Resolved]
  - Psychotic symptom [Recovered/Resolved]
